FAERS Safety Report 16027154 (Version 1)
Quarter: 2019Q1

REPORT INFORMATION
  Report Type: Spontaneous
  Country: US (occurrence: US)
  Receive Date: 20190303
  Receipt Date: 20190303
  Transmission Date: 20190418
  Serious: Yes (Other)
  Sender: FDA-Public Use
  Company Number: US-JIANGSU HENGRUI MEDICINE CO., LTD.-2063476

PATIENT

DRUGS (4)
  1. DINUTUXIMAB [Concomitant]
     Active Substance: DINUTUXIMAB
     Route: 042
  2. IRINOTECAN HYDROCHLORIDE INJECTION, 20 MG/ML (2 ML AND 5 ML VIALS) (AN [Suspect]
     Active Substance: IRINOTECAN HYDROCHLORIDE
     Indication: NEUROBLASTOMA RECURRENT
     Route: 041
  3. TEMOZOLOMIDE. [Concomitant]
     Active Substance: TEMOZOLOMIDE
     Route: 065
  4. UNKNOWNDURG [Concomitant]
     Route: 065

REACTIONS (1)
  - Hypoxia [Unknown]
